FAERS Safety Report 14333888 (Version 1)
Quarter: 2017Q4

REPORT INFORMATION
  Report Type: Spontaneous
  Country: JP (occurrence: JP)
  Receive Date: 20171228
  Receipt Date: 20171228
  Transmission Date: 20180321
  Serious: Yes (Death, Other)
  Sender: FDA-Public Use
  Company Number: JP-PFIZER INC-2017552028

PATIENT
  Age: 85 Year
  Sex: Female

DRUGS (1)
  1. UNASYN-S 3G [Suspect]
     Active Substance: AMPICILLIN SODIUM\SULBACTAM SODIUM
     Dosage: UNK
     Dates: start: 201608, end: 201608

REACTIONS (2)
  - Pneumonia [Fatal]
  - Stevens-Johnson syndrome [Fatal]
